FAERS Safety Report 8054733-9 (Version None)
Quarter: 2012Q1

REPORT INFORMATION
  Report Type: 
  Country: None (occurrence: None)
  Receive Date: 20120119
  Receipt Date: 20120105
  Transmission Date: 20120608
  Serious: Yes (Other)
  Sender: FDA-Public Use
  Company Number: US-PFIZER INC-2012004204

PATIENT
  Sex: Female
  Weight: 65.3 kg

DRUGS (4)
  1. LYRICA [Suspect]
     Indication: SCIATICA
     Dosage: UNK, DAILY
     Route: 048
     Dates: start: 20110101, end: 20110101
  2. CALCIUM [Concomitant]
     Dosage: UNK, 2X/DAY
  3. MULTI-VITAMINS [Concomitant]
     Dosage: UNK
  4. FISH OIL [Concomitant]
     Dosage: UNK, 2X/DAY

REACTIONS (2)
  - BACK PAIN [None]
  - DRUG INEFFECTIVE [None]
